FAERS Safety Report 6388204-2 (Version None)
Quarter: 2009Q4

REPORT INFORMATION
  Report Type: 
  Country: None (occurrence: None)
  Receive Date: 20091005
  Receipt Date: 20090831
  Transmission Date: 20100525
  Serious: No
  Sender: FDA-Public Use
  Company Number: US-BAYER-200914094BCC

PATIENT
  Age: 88 Year
  Sex: Female
  Weight: 68 kg

DRUGS (5)
  1. ALEVE [Suspect]
     Indication: PELVIC PAIN
     Dosage: TOTAL DAILY DOSE: 440 MG  UNIT DOSE: 220 MG
     Route: 048
     Dates: start: 20090828, end: 20090828
  2. ALEVE [Suspect]
     Dosage: TOTAL DAILY DOSE: 220 MG  UNIT DOSE: 220 MG
     Route: 048
     Dates: start: 20090829, end: 20090829
  3. ALEVE [Suspect]
     Route: 048
     Dates: start: 20090801, end: 20090801
  4. HYDROCODONE [Concomitant]
     Route: 065
  5. UNKNOWN VITAMINS [Concomitant]
     Route: 065

REACTIONS (1)
  - INSOMNIA [None]
